FAERS Safety Report 23325993 (Version 2)
Quarter: 2025Q2

REPORT INFORMATION
  Report Type: Report from Study
  Country: US (occurrence: US)
  Receive Date: 20231221
  Receipt Date: 20250623
  Transmission Date: 20250717
  Serious: Yes (Other)
  Sender: EMD SERONO INC
  Company Number: US-Merck Healthcare KGaA-2023492944

PATIENT
  Age: 41 Year
  Sex: Female

DRUGS (1)
  1. MAVENCLAD [Suspect]
     Active Substance: CLADRIBINE
     Indication: Multiple sclerosis
     Dosage: YEAR ONE MONTH ONE THERAPY
     Dates: start: 20231205, end: 20231208

REACTIONS (12)
  - Haematochezia [Recovered/Resolved]
  - Arthralgia [Unknown]
  - Abdominal pain upper [Unknown]
  - Diarrhoea [Recovered/Resolved]
  - Nausea [Unknown]
  - Fatigue [Unknown]
  - Dizziness [Unknown]
  - Pain [Recovering/Resolving]
  - Nasal congestion [Recovering/Resolving]
  - Discomfort [Recovering/Resolving]
  - Headache [Unknown]
  - Sneezing [Recovering/Resolving]

NARRATIVE: CASE EVENT DATE: 20231205
